FAERS Safety Report 8403630-5 (Version None)
Quarter: 2012Q2

REPORT INFORMATION
  Report Type: 
  Country: None (occurrence: None)
  Receive Date: 20120601
  Receipt Date: 20120521
  Transmission Date: 20120825
  Serious: Yes (Death, Life-Threatening, Hospitalization, Disabling, Other)
  Sender: FDA-Public Use
  Company Number: US-MYLANLABS-2009AC000153

PATIENT
  Sex: Male

DRUGS (112)
  1. LEVAQUIN [Concomitant]
  2. POTASSIUM CHLORIDE [Concomitant]
  3. FOLIC ACID [Concomitant]
  4. DYNACIRC [Concomitant]
  5. DYAZIDE [Concomitant]
  6. INTEGRILIN [Concomitant]
  7. BENADRYL [Concomitant]
  8. DIGIBIND [Concomitant]
  9. ANTIDEPRESSANTS [Concomitant]
  10. GLYBURIDE [Concomitant]
  11. ACETAMINOPHEN [Concomitant]
  12. ELIDEL [Concomitant]
  13. PLAQUENIL [Concomitant]
  14. PAXIL [Concomitant]
  15. VITAMIN B COMPLEX CAP [Concomitant]
  16. POTASSIUM GLUCONATE TAB [Concomitant]
  17. HUMULIN R [Concomitant]
  18. LORTAB [Concomitant]
  19. ALDACTONE [Concomitant]
  20. NITRGLYCERIN TRANSDERMAL SYSTEM [Concomitant]
  21. IRON [Concomitant]
  22. LOTEMAX [Concomitant]
  23. ECONOPRED /00016201/ [Concomitant]
  24. PEPCID [Concomitant]
  25. ZOCOR [Concomitant]
  26. OMEPRAZOLE [Concomitant]
  27. ISOSORBIDE DINITRATE [Concomitant]
  28. WARFARIN SODIUM [Concomitant]
  29. ASPIRIN [Concomitant]
  30. DIOVAN [Concomitant]
  31. NORMODYNE [Concomitant]
  32. CALAN [Concomitant]
  33. VITAMIN B COMPLEX CAP [Concomitant]
  34. ZOSYN [Concomitant]
  35. TEMOVATE [Concomitant]
  36. VERSED [Concomitant]
  37. AZITHROMYCIN [Concomitant]
  38. MAXZIDE [Concomitant]
  39. VERAPAMIL HCL [Concomitant]
  40. SOLUTIONS FOR PARENTERAL NUTRITION [Concomitant]
  41. LEVITRA [Concomitant]
  42. NIZORAL [Concomitant]
  43. PROTOPIC [Concomitant]
  44. VIGAMOX [Concomitant]
  45. TISSUE PLASMINOGEN ACTIVATOR, RECOMBINATIVE [Concomitant]
  46. FLEET ENEMA MINERAL OIL [Concomitant]
  47. PREDNISONE TAB [Concomitant]
  48. FERROUS SULFATE TAB [Concomitant]
  49. MULTI-VITAMIN [Concomitant]
  50. DILAUDID [Concomitant]
  51. ZOCOR [Concomitant]
  52. PREVACID [Concomitant]
  53. LOPRESSOR [Concomitant]
  54. KENALOG [Concomitant]
  55. IMDUR [Concomitant]
  56. HYDROXYCHLOROQUINE SULFATE [Concomitant]
  57. MILK OF MAGNESIA TAB [Concomitant]
  58. DIGOXIN [Suspect]
     Route: 048
     Dates: start: 20030722, end: 20080322
  59. BACTROBAN [Concomitant]
  60. LEVETIRACETAM [Concomitant]
  61. SIMVASTATIN [Concomitant]
  62. COREG [Concomitant]
  63. COUMADIN [Concomitant]
  64. ZANTAC [Concomitant]
  65. LIPITOR [Concomitant]
  66. VERAPAMIL EXTENDED-RELEASE [Concomitant]
  67. VIAGRA [Concomitant]
  68. PHOSPHODIESTERASE INHIBITORS [Concomitant]
  69. METFORMIN HCL [Concomitant]
  70. ACETAMINOPHEN [Concomitant]
  71. DULCOLAX [Concomitant]
  72. THIAMINE [Concomitant]
  73. GLUCOTROL [Concomitant]
  74. CELEXA [Concomitant]
  75. HYDROCODONE [Concomitant]
  76. PROMETHAZINE [Concomitant]
  77. AMOXICILLIN [Concomitant]
  78. PROPOXYPHENE HYDROCHLORIDE [Concomitant]
  79. HYDROCHLOROTHIAZIDE [Concomitant]
  80. CITALOPRAM HYDROBROMIDE [Concomitant]
  81. PAROXETINE HCL [Concomitant]
  82. VITAMIN B-12 [Concomitant]
  83. PROVIGIL [Concomitant]
  84. ISOSORBIDE DINITRATE [Concomitant]
  85. TRIAMTERENE AND HYDROCHLOROTHIAZIDE [Concomitant]
  86. AVANDIA [Concomitant]
  87. NITROGLYCERIN [Concomitant]
  88. TENORMIN [Concomitant]
  89. HEPARIN [Concomitant]
  90. MINOCYCLINE HCL [Concomitant]
  91. DEMEROL [Concomitant]
  92. ISORDIL [Concomitant]
  93. FOLVITE /00024201/ [Concomitant]
  94. DILANTIN [Concomitant]
  95. CLOBETASOL PROPIONATE [Concomitant]
  96. GLIPIZIDE [Concomitant]
  97. FUROSEMIDE [Concomitant]
  98. PLAVIX [Concomitant]
  99. HYDRALAZINE HCL [Concomitant]
  100. RANITIDINE [Concomitant]
  101. IMDUR [Concomitant]
  102. TEMOVATE [Concomitant]
  103. MICRONASE [Concomitant]
  104. COZAAR [Concomitant]
  105. PRILOSEC [Concomitant]
  106. LASIX [Concomitant]
  107. CALCIUM [Concomitant]
  108. REGLAN [Concomitant]
  109. NIFEREX /00023531/ [Concomitant]
  110. TAGAMET [Concomitant]
  111. INSULIN [Concomitant]
  112. PERI-COLACE [Concomitant]

REACTIONS (210)
  - CEREBROVASCULAR ACCIDENT [None]
  - ISCHAEMIC CARDIOMYOPATHY [None]
  - DYSPNOEA [None]
  - NAUSEA [None]
  - TRICUSPID VALVE INCOMPETENCE [None]
  - DIZZINESS POSTURAL [None]
  - WEIGHT INCREASED [None]
  - VISUAL ACUITY REDUCED [None]
  - BLOOD CREATININE INCREASED [None]
  - CARDIAC PACEMAKER INSERTION [None]
  - EYE MOVEMENT DISORDER [None]
  - HEMIANOPIA [None]
  - BASAL CELL CARCINOMA [None]
  - ANGIOPATHY [None]
  - AORTIC VALVE INCOMPETENCE [None]
  - BODY FAT DISORDER [None]
  - COGNITIVE DISORDER [None]
  - EYELID MARGIN CRUSTING [None]
  - HAEMATOCRIT DECREASED [None]
  - HYPERTENSIVE HEART DISEASE [None]
  - LABORATORY TEST ABNORMAL [None]
  - INCISIONAL HERNIA [None]
  - LIMB DISCOMFORT [None]
  - NOCTURIA [None]
  - SUPRAVENTRICULAR EXTRASYSTOLES [None]
  - MYOCARDIAL INFARCTION [None]
  - PALPITATIONS [None]
  - DEPRESSED MOOD [None]
  - PROSTATISM [None]
  - GASTROINTESTINAL STENOSIS [None]
  - CARDIAC FAILURE CONGESTIVE [None]
  - MITRAL VALVE INCOMPETENCE [None]
  - LEFT VENTRICULAR HYPERTROPHY [None]
  - DIASTOLIC DYSFUNCTION [None]
  - CONVULSION [None]
  - COUGH [None]
  - DEEP VEIN THROMBOSIS [None]
  - ABDOMINAL PAIN UPPER [None]
  - DISEASE PROGRESSION [None]
  - NARCOLEPSY [None]
  - ATRIOVENTRICULAR BLOCK FIRST DEGREE [None]
  - DEAFNESS [None]
  - TEMPORAL LOBE EPILEPSY [None]
  - DEMENTIA [None]
  - ANXIETY [None]
  - BALANCE DISORDER [None]
  - BLOOD BICARBONATE DECREASED [None]
  - DEPRESSED LEVEL OF CONSCIOUSNESS [None]
  - DERMAL CYST [None]
  - EMBOLIC STROKE [None]
  - INTERNATIONAL NORMALISED RATIO INCREASED [None]
  - NEUROLOGICAL EXAMINATION ABNORMAL [None]
  - PNEUMONIA [None]
  - POOR QUALITY SLEEP [None]
  - PRESYNCOPE [None]
  - VITAMIN B12 DEFICIENCY [None]
  - IMPLANTABLE DEFIBRILLATOR INSERTION [None]
  - CUTANEOUS SARCOIDOSIS [None]
  - ERECTILE DYSFUNCTION [None]
  - VOMITING [None]
  - URINARY RETENTION [None]
  - HEART RATE IRREGULAR [None]
  - DIABETIC RETINOPATHY [None]
  - BRAIN MIDLINE SHIFT [None]
  - CEREBRAL INFARCTION [None]
  - CHEST DISCOMFORT [None]
  - DYSPHAGIA [None]
  - ENCEPHALOMALACIA [None]
  - FAT NECROSIS [None]
  - GASTROOESOPHAGEAL REFLUX DISEASE [None]
  - INFLAMMATION [None]
  - LEFT VENTRICULAR DYSFUNCTION [None]
  - MANIA [None]
  - MEMORY IMPAIRMENT [None]
  - OSTEOARTHRITIS [None]
  - SEROMA [None]
  - SKIN MASS [None]
  - TOXICITY TO VARIOUS AGENTS [None]
  - FATIGUE [None]
  - OEDEMA PERIPHERAL [None]
  - APHASIA [None]
  - HYPOGLYCAEMIA [None]
  - RENAL CYST [None]
  - NEPHROLITHIASIS [None]
  - CARDIOMYOPATHY [None]
  - GYNAECOMASTIA [None]
  - ECHOCARDIOGRAM ABNORMAL [None]
  - HYPERTENSION [None]
  - DECREASED APPETITE [None]
  - CORONARY ARTERY DISEASE [None]
  - BLINDNESS [None]
  - PULMONARY ARTERIAL HYPERTENSION [None]
  - AFFECTIVE DISORDER [None]
  - AGITATION [None]
  - FACTOR V LEIDEN MUTATION [None]
  - HAEMORRHAGIC STROKE [None]
  - HYPERHIDROSIS [None]
  - IRRITABLE BOWEL SYNDROME [None]
  - JOINT STIFFNESS [None]
  - NEOPLASM SKIN [None]
  - PAIN [None]
  - PERIPHERAL SENSORY NEUROPATHY [None]
  - LUNG DISORDER [None]
  - REFUSAL OF TREATMENT BY PATIENT [None]
  - WOUND [None]
  - RENAL DISORDER [None]
  - WEANING FAILURE [None]
  - EJECTION FRACTION DECREASED [None]
  - DIABETES MELLITUS [None]
  - ANAEMIA [None]
  - VISUAL IMPAIRMENT [None]
  - ECONOMIC PROBLEM [None]
  - CATARACT OPERATION [None]
  - CEREBRAL HAEMORRHAGE [None]
  - PNEUMONITIS [None]
  - HAEMORRHAGE INTRACRANIAL [None]
  - ARTHRALGIA [None]
  - BLOOD CALCIUM DECREASED [None]
  - BLOOD UREA DECREASED [None]
  - DEPRESSION [None]
  - FEAR OF DEATH [None]
  - FEELING OF DESPAIR [None]
  - HEART SOUNDS ABNORMAL [None]
  - ISCHAEMIC STROKE [None]
  - MALAISE [None]
  - MUSCLE SPASMS [None]
  - PLATELET COUNT DECREASED [None]
  - WHEEZING [None]
  - GENERAL SYMPTOM [None]
  - CATARACT [None]
  - MALNUTRITION [None]
  - ELECTROCARDIOGRAM T WAVE INVERSION [None]
  - PULMONARY HYPERTENSION [None]
  - LETHARGY [None]
  - DYSARTHRIA [None]
  - FAILURE TO THRIVE [None]
  - VITREOUS DETACHMENT [None]
  - ARRHYTHMIA [None]
  - DISEASE RECURRENCE [None]
  - BLOOD POTASSIUM DECREASED [None]
  - BREATH SOUNDS ABNORMAL [None]
  - COMPUTERISED TOMOGRAM ABDOMEN ABNORMAL [None]
  - COORDINATION ABNORMAL [None]
  - HAEMOGLOBIN DECREASED [None]
  - INSOMNIA [None]
  - INTRACRANIAL PRESSURE INCREASED [None]
  - MOOD SWINGS [None]
  - VENA CAVA FILTER INSERTION [None]
  - INJURY [None]
  - RENAL FAILURE [None]
  - VISUAL FIELD DEFECT [None]
  - ANASTOMOTIC COMPLICATION [None]
  - PULMONARY OEDEMA [None]
  - SOMNOLENCE [None]
  - RETCHING [None]
  - ILL-DEFINED DISORDER [None]
  - CONGENITAL CYSTIC KIDNEY DISEASE [None]
  - HYPOKINESIA [None]
  - ATRIOVENTRICULAR BLOCK COMPLETE [None]
  - ATELECTASIS [None]
  - ELECTROCARDIOGRAM QT PROLONGED [None]
  - ASTERIXIS [None]
  - ASTHENIA [None]
  - BLOOD ALBUMIN DECREASED [None]
  - BLOOD BILIRUBIN DECREASED [None]
  - CARDIOMEGALY [None]
  - CERUMEN IMPACTION [None]
  - DECREASED ACTIVITY [None]
  - DIARRHOEA [None]
  - DISTURBANCE IN ATTENTION [None]
  - EYE OEDEMA [None]
  - FLUID OVERLOAD [None]
  - HYPERCOAGULATION [None]
  - IMPAIRED SELF-CARE [None]
  - INTRAOCULAR LENS IMPLANT [None]
  - MICROALBUMINURIA [None]
  - ORTHOPNOEA [None]
  - PROTEIN TOTAL INCREASED [None]
  - SLEEP APNOEA SYNDROME [None]
  - TREMOR [None]
  - UNRESPONSIVE TO STIMULI [None]
  - VENTRICULAR HYPERTROPHY [None]
  - CAROTID ARTERY STENOSIS [None]
  - PARENTERAL NUTRITION [None]
  - WEIGHT DECREASED [None]
  - LEFT ATRIAL DILATATION [None]
  - CARDIAC MURMUR [None]
  - BLOOD UREA INCREASED [None]
  - HAEMOPTYSIS [None]
  - DEATH [None]
  - DYSLIPIDAEMIA [None]
  - GASTRIC BYPASS [None]
  - HEMIPARESIS [None]
  - BLOOD GLUCOSE FLUCTUATION [None]
  - BLOOD GLUCOSE INCREASED [None]
  - BLOOD SODIUM DECREASED [None]
  - BRAIN SCAN ABNORMAL [None]
  - CAROTID ARTERIOSCLEROSIS [None]
  - CONDITION AGGRAVATED [None]
  - CORNEAL OEDEMA [None]
  - DILATATION VENTRICULAR [None]
  - FUNGAL INFECTION [None]
  - GRANULOMA SKIN [None]
  - HILAR LYMPHADENOPATHY [None]
  - LIPOGRANULOMA [None]
  - LOW DENSITY LIPOPROTEIN INCREASED [None]
  - NORMOCHROMIC NORMOCYTIC ANAEMIA [None]
  - PROTEINURIA [None]
  - PROTHROMBIN TIME PROLONGED [None]
  - CARDIAC DISORDER [None]
